FAERS Safety Report 4539509-9 (Version None)
Quarter: 2004Q4

REPORT INFORMATION
  Report Type: 
  Country: None (occurrence: None)
  Receive Date: 20041227
  Receipt Date: 20041227
  Transmission Date: 20050328
  Serious: Yes (Death)
  Sender: FDA-Public Use
  Company Number: None

PATIENT
  Age: 19 Year
  Sex: Male
  Weight: 99.7913 kg

DRUGS (1)
  1. OXYCONTIN [Suspect]

REACTIONS (3)
  - DRUG ABUSER [None]
  - OVERDOSE [None]
  - SELF-MEDICATION [None]
